FAERS Safety Report 19678452 (Version 4)
Quarter: 2021Q4

REPORT INFORMATION
  Report Type: Spontaneous
  Country: US (occurrence: US)
  Receive Date: 20210810
  Receipt Date: 20211029
  Transmission Date: 20220304
  Serious: Yes (Hospitalization, Other)
  Sender: FDA-Public Use
  Company Number: US-TEVA-2021-US-1940117

PATIENT
  Age: 63 Year
  Sex: Female
  Weight: 113.3 kg

DRUGS (13)
  1. VALSARTAN [Suspect]
     Active Substance: VALSARTAN
     Indication: Hypertension
     Route: 065
     Dates: start: 20151117, end: 201601
  2. VALSARTAN [Suspect]
     Active Substance: VALSARTAN
     Indication: Hypertension
     Route: 065
     Dates: start: 20151006, end: 201511
  3. VALSARTAN [Suspect]
     Active Substance: VALSARTAN
     Route: 065
     Dates: start: 20160211, end: 201607
  4. VALSARTAN [Suspect]
     Active Substance: VALSARTAN
     Indication: Hypertension
     Route: 065
     Dates: start: 20160512, end: 201708
  5. VALSARTAN [Suspect]
     Active Substance: VALSARTAN
     Route: 065
     Dates: start: 20170905, end: 201711
  6. VALSARTAN [Suspect]
     Active Substance: VALSARTAN
     Indication: Hypertension
     Route: 065
     Dates: start: 20140819, end: 201410
  7. ATENOLOL [Concomitant]
     Active Substance: ATENOLOL
     Dosage: 12.5 MILLIGRAM DAILY; ONGOING
     Route: 065
     Dates: start: 2012
  8. VENLAFAXINE [Concomitant]
     Active Substance: VENLAFAXINE HYDROCHLORIDE
     Indication: Bipolar disorder
     Dosage: 100 MILLIGRAM DAILY; ONGOING
     Route: 065
     Dates: start: 2015
  9. ABILIFY [Concomitant]
     Active Substance: ARIPIPRAZOLE
     Indication: Bipolar disorder
     Dosage: 5 MILLIGRAM DAILY; ONGOING
     Route: 065
     Dates: start: 2015
  10. OXYBUTYNIN. [Concomitant]
     Active Substance: OXYBUTYNIN CHLORIDE
     Indication: Renal disorder
     Dosage: 25 MILLIGRAM DAILY; ONGOING
     Route: 065
     Dates: start: 2015
  11. TRAMADOL [Concomitant]
     Active Substance: TRAMADOL
     Indication: Arthralgia
     Dosage: 75 MILLIGRAM DAILY; ONGOING
     Route: 065
     Dates: start: 2015
  12. TYLENOL [Concomitant]
     Active Substance: ACETAMINOPHEN
     Dosage: 500 MILLIGRAM DAILY; ONGOING
     Route: 065
     Dates: start: 20150101
  13. VITAMIN D3 [Concomitant]
     Active Substance: CHOLECALCIFEROL
     Indication: Vitamin D deficiency
     Dosage: ONGOING
     Route: 065
     Dates: start: 2015

REACTIONS (5)
  - Renal cell carcinoma [Recovered/Resolved]
  - Blood urine present [Recovering/Resolving]
  - Urinary incontinence [Recovering/Resolving]
  - Urinary tract infection bacterial [Recovered/Resolved]
  - Flank pain [Recovering/Resolving]

NARRATIVE: CASE EVENT DATE: 20180226
